FAERS Safety Report 7973643-6 (Version None)
Quarter: 2011Q4

REPORT INFORMATION
  Report Type: 
  Country: None (occurrence: None)
  Receive Date: 20111213
  Receipt Date: 20111208
  Transmission Date: 20120403
  Serious: Yes (Hospitalization)
  Sender: FDA-Public Use
  Company Number: DE-ROCHE-1021081

PATIENT
  Sex: Female
  Weight: 62.4 kg

DRUGS (2)
  1. AVASTIN [Suspect]
     Indication: METASTASES TO LIVER
     Route: 042
  2. PACLITAXEL [Suspect]
     Indication: METASTASES TO LIVER
     Route: 042

REACTIONS (3)
  - PYREXIA [None]
  - OEDEMA [None]
  - HYPERSENSITIVITY [None]
